FAERS Safety Report 5422065-0 (Version None)
Quarter: 2007Q3

REPORT INFORMATION
  Report Type: 
  Country: None (occurrence: None)
  Receive Date: 20070821
  Receipt Date: 20070821
  Transmission Date: 20080115
  Serious: No
  Sender: FDA-Public Use
  Company Number: None

PATIENT
  Age: 82 Year
  Sex: Male
  Weight: 68.4932 kg

DRUGS (2)
  1. FOSINOPRIL SODIUM [Suspect]
     Indication: HYPERTENSION
     Dosage: 40MG BID PO
     Route: 048
     Dates: start: 19941028, end: 20050718
  2. ACETAMINOPHEN [Suspect]
     Indication: PAIN
     Dosage: 1000MG QID PO
     Route: 048
     Dates: start: 19981029, end: 20050922

REACTIONS (4)
  - BLOOD CREATININE INCREASED [None]
  - BLOOD UREA INCREASED [None]
  - HYPOKALAEMIA [None]
  - URINARY RETENTION [None]
